FAERS Safety Report 10885001 (Version 1)
Quarter: 2015Q1

REPORT INFORMATION
  Report Type: Spontaneous
  Country: GB (occurrence: GB)
  Receive Date: 20150304
  Receipt Date: 20150304
  Transmission Date: 20150721
  Serious: Yes (Hospitalization)
  Sender: FDA-Public Use
  Company Number: GB-PFIZER INC-2015072219

PATIENT
  Sex: Female

DRUGS (4)
  1. LUSTRAL [Suspect]
     Active Substance: SERTRALINE HYDROCHLORIDE
     Dosage: 100 MG, TOOK FIVE DOSE UNITS (INCLUDING THE ONE SHE ^VOMITED A MINUTE LATER^)
     Dates: start: 20150203
  2. SYNDOL (ACETAMINOPHEN\CAFFEINE\CODEINE\DOXYLAMINE) [Suspect]
     Active Substance: ACETAMINOPHEN\CAFFEINE\CODEINE\DOXYLAMINE
     Dosage: 2000 MG, 1X/DAY
     Route: 048
     Dates: start: 20150201, end: 20150201
  3. SYNDOL (ACETAMINOPHEN\CAFFEINE\CODEINE\DOXYLAMINE) [Suspect]
     Active Substance: ACETAMINOPHEN\CAFFEINE\CODEINE\DOXYLAMINE
     Dosage: 1000 MG, 1X/DAY
     Route: 048
     Dates: start: 20150202, end: 20150202
  4. SYNDOL (ACETAMINOPHEN\CAFFEINE\CODEINE\DOXYLAMINE) [Suspect]
     Active Substance: ACETAMINOPHEN\CAFFEINE\CODEINE\DOXYLAMINE
     Dosage: 3000 MG, 1X/DAY
     Route: 048
     Dates: start: 20150131, end: 20150131

REACTIONS (9)
  - Anxiety [Unknown]
  - Chills [Unknown]
  - Product commingling [Unknown]
  - Headache [Unknown]
  - Malaise [Unknown]
  - Tremor [Unknown]
  - Accidental exposure to product [Unknown]
  - Nausea [Unknown]
  - Dizziness [Unknown]

NARRATIVE: CASE EVENT DATE: 20150203
